FAERS Safety Report 5330876-5 (Version None)
Quarter: 2007Q2

REPORT INFORMATION
  Report Type: 
  Country: None (occurrence: None)
  Receive Date: 20070516
  Receipt Date: 20070504
  Transmission Date: 20071010
  Serious: Yes (Other)
  Sender: FDA-Public Use
  Company Number: GXKR2007US04068

PATIENT
  Age: 4 Year
  Sex: Female

DRUGS (1)
  1. PARACETAMOL (NGX) PARACETAMOL) UNKNOWN [Suspect]
     Dosage: SEE IMAGE
     Route: 048

REACTIONS (8)
  - DRUG SPECIFIC ANTIBODY PRESENT [None]
  - ECCHYMOSIS [None]
  - HAEMORRHAGE [None]
  - MOUTH HAEMORRHAGE [None]
  - ORAL MUCOSAL PETECHIAE [None]
  - PETECHIAE [None]
  - PYREXIA [None]
  - THROMBOCYTOPENIA [None]
